FAERS Safety Report 4266587-7 (Version None)
Quarter: 2004Q1

REPORT INFORMATION
  Report Type: 
  Country: None (occurrence: None)
  Receive Date: 20040108
  Receipt Date: 20031001
  Transmission Date: 20041129
  Serious: Yes (Other)
  Sender: FDA-Public Use
  Company Number: US-BRISTOL-MYERS SQUIBB COMPANY-12399200

PATIENT
  Age: 38 Year
  Sex: Male
  Weight: 60 kg

DRUGS (5)
  1. REYATAZ [Suspect]
     Indication: HIV INFECTION
     Route: 048
     Dates: start: 20030101, end: 20030901
  2. VIDEX EC [Concomitant]
  3. NORVIR [Concomitant]
  4. INSULIN [Concomitant]
  5. VIREAD [Concomitant]

REACTIONS (1)
  - HEPATITIS B [None]
